FAERS Safety Report 10278517 (Version 2)
Quarter: 2014Q4

REPORT INFORMATION
  Report Type: Spontaneous
  Country: US (occurrence: US)
  Receive Date: 20140704
  Receipt Date: 20141029
  Transmission Date: 20150528
  Serious: Yes (Death, Hospitalization)
  Sender: FDA-Public Use
  Company Number: PHHY2014US080695

PATIENT
  Age: 80 Year
  Sex: Male

DRUGS (3)
  1. AMIODARONE [Suspect]
     Active Substance: AMIODARONE
     Indication: ATRIAL FIBRILLATION
     Dosage: 1.2 MG, TID
     Route: 048
  2. AMIODARONE [Suspect]
     Active Substance: AMIODARONE
     Indication: VENTRICULAR ARRHYTHMIA
     Dosage: 0.5 MG/MIN
     Route: 042
  3. AMIODARONE [Suspect]
     Active Substance: AMIODARONE
     Dosage: 12.5 G TOTAL DOSE IN PRECEDING 12 DAYS
     Route: 048

REACTIONS (9)
  - Syncope [Recovering/Resolving]
  - Dyspnoea [Recovering/Resolving]
  - Crepitations [Recovering/Resolving]
  - Pulmonary toxicity [Recovering/Resolving]
  - Death [Fatal]
  - Red blood cell sedimentation rate increased [Recovering/Resolving]
  - Cough [Recovering/Resolving]
  - Hypoxia [Recovering/Resolving]
  - Leukocytosis [Recovering/Resolving]
